FAERS Safety Report 9818247 (Version 1)
Quarter: 2013Q4

REPORT INFORMATION
  Report Type: Spontaneous
  Country: US (occurrence: None)
  Receive Date: 20131223
  Receipt Date: 20131223
  Transmission Date: 20140711
  Serious: No
  Sender: FDA-Public Use
  Company Number: 220059

PATIENT
  Age: 51 Year
  Sex: Male

DRUGS (1)
  1. PICATO [Suspect]
     Dates: start: 20121228, end: 20121230

REACTIONS (3)
  - Application site erythema [None]
  - Application site burn [None]
  - Application site exfoliation [None]
